FAERS Safety Report 17584804 (Version 1)
Quarter: 2020Q1

REPORT INFORMATION
  Report Type: Spontaneous
  Country: TW (occurrence: TW)
  Receive Date: 20200326
  Receipt Date: 20200326
  Transmission Date: 20200409
  Serious: Yes (Hospitalization, Other)
  Sender: FDA-Public Use
  Company Number: TW-SA-2020SA017599

PATIENT
  Age: 59 Year
  Sex: Male

DRUGS (1)
  1. FABRAZYME [Suspect]
     Active Substance: AGALSIDASE BETA
     Dosage: 1 MG/KG, QOW
     Route: 041

REACTIONS (3)
  - Syncope [Unknown]
  - Cholecystitis infective [Recovering/Resolving]
  - Migraine [Recovered/Resolved]

NARRATIVE: CASE EVENT DATE: 20200104
